FAERS Safety Report 8615374-5 (Version None)
Quarter: 2012Q3

REPORT INFORMATION
  Report Type: 
  Country: None (occurrence: None)
  Receive Date: 20120823
  Receipt Date: 20120814
  Transmission Date: 20120928
  Serious: Yes (Hospitalization, Disabling, Other)
  Sender: FDA-Public Use
  Company Number: US-009507513-1207USA00055

PATIENT

DRUGS (2)
  1. FOSAMAX [Suspect]
     Indication: OSTEOPOROSIS
     Dosage: 70 MG, UNK
     Route: 048
  2. FOSAMAX [Suspect]
     Dosage: 70 MG, UNK
     Route: 048
     Dates: start: 20060301, end: 20070801

REACTIONS (15)
  - RHEUMATOID ARTHRITIS [None]
  - BRADYCARDIA [None]
  - CARDIAC PACEMAKER INSERTION [None]
  - OPEN REDUCTION OF FRACTURE [None]
  - HYSTERECTOMY [None]
  - BLOOD CHOLESTEROL INCREASED [None]
  - FEMUR FRACTURE [None]
  - RENAL FAILURE [None]
  - CHOLECYSTECTOMY [None]
  - KNEE ARTHROPLASTY [None]
  - LOW TURNOVER OSTEOPATHY [None]
  - CORONARY ARTERIAL STENT INSERTION [None]
  - HYPERTENSION [None]
  - OSTEOPOROSIS [None]
  - STRESS FRACTURE [None]
